FAERS Safety Report 26102454 (Version 1)
Quarter: 2025Q4

REPORT INFORMATION
  Report Type: Spontaneous
  Country: CN (occurrence: CN)
  Receive Date: 20251128
  Receipt Date: 20251128
  Transmission Date: 20260118
  Serious: Yes (Life-Threatening, Hospitalization)
  Sender: PFIZER
  Company Number: CN-PFIZER INC-PV202500137212

PATIENT
  Age: 77 Year
  Sex: Male

DRUGS (7)
  1. VFEND [Suspect]
     Active Substance: VORICONAZOLE
     Indication: Antifungal treatment
     Dosage: 0.2 G Q12H
     Dates: start: 20251028, end: 20251101
  2. ZYVOX [Suspect]
     Active Substance: LINEZOLID
     Indication: Anti-infective therapy
     Dosage: 600 MG Q12H
     Dates: start: 20251101, end: 20251101
  3. TIGECYCLINE [Suspect]
     Active Substance: TIGECYCLINE
     Indication: Bacterial infection
     Dosage: 100 MG IN THE MORNING AND 50 MG IN THE EVENING
     Dates: start: 20251030, end: 20251031
  4. CEFOPERAZONE SODIUM\SULBACTAM SODIUM [Suspect]
     Active Substance: CEFOPERAZONE SODIUM\SULBACTAM SODIUM
     Indication: Bacterial infection
     Dosage: 3 G Q12H
     Dates: start: 20251029, end: 20251031
  5. DURLOBACTAM\SULBACTAM [Suspect]
     Active Substance: DURLOBACTAM\SULBACTAM
     Indication: Bacterial infection
     Dosage: 2 G Q12H
     Dates: start: 20251101, end: 20251101
  6. LINEZOLID [Suspect]
     Active Substance: LINEZOLID
     Indication: Anti-infective therapy
     Dosage: 600 MG Q12H
     Dates: start: 20251029, end: 20251031
  7. POLYMYXIN [Suspect]
     Active Substance: POLYMYXIN
     Dosage: 75 MG BID
     Route: 055
     Dates: start: 20251031, end: 20251101

REACTIONS (5)
  - Anuria [Recovering/Resolving]
  - Blood pressure decreased [Recovering/Resolving]
  - Oxygen saturation decreased [Recovering/Resolving]
  - Pyrexia [Recovering/Resolving]
  - Tachypnoea [Recovering/Resolving]

NARRATIVE: CASE EVENT DATE: 20250101
